FAERS Safety Report 8848589 (Version 1)
Quarter: 2012Q4

REPORT INFORMATION
  Report Type: 
  Country: FR (occurrence: FR)
  Receive Date: 20121018
  Receipt Date: 20121018
  Transmission Date: 20130627
  Serious: Yes (Hospitalization)
  Sender: FDA-Public Use
  Company Number: FR-ROCHE-1145031

PATIENT
  Age: 76 Year
  Sex: Female

DRUGS (4)
  1. ROCEPHINE [Suspect]
     Indication: PRODUCT USED FOR UNKNOWN INDICATION
     Route: 042
     Dates: start: 20120611, end: 20120626
  2. TAVANIC [Suspect]
     Indication: PNEUMONIA
     Route: 042
     Dates: start: 201205, end: 20120606
  3. PRISTINAMYCIN [Suspect]
     Indication: PYREXIA
     Route: 042
     Dates: start: 20120609
  4. VANCOMYCINE [Suspect]
     Indication: PRODUCT USED FOR UNKNOWN INDICATION
     Route: 042
     Dates: start: 20120611, end: 20120618

REACTIONS (2)
  - Clostridium difficile colitis [Recovered/Resolved with Sequelae]
  - Dehydration [Recovered/Resolved with Sequelae]
